FAERS Safety Report 7725515-X (Version None)
Quarter: 2011Q3

REPORT INFORMATION
  Report Type: 
  Country: None (occurrence: None)
  Receive Date: 20110902
  Receipt Date: 20110516
  Transmission Date: 20111222
  Serious: No
  Sender: FDA-Public Use
  Company Number: US-BRISTOL-MYERS SQUIBB COMPANY-15746605

PATIENT
  Age: 64 Year
  Sex: Male

DRUGS (2)
  1. CAPTOPRIL [Concomitant]
  2. KOMBIGLYZE XR [Suspect]

REACTIONS (2)
  - GASTROINTESTINAL SOUNDS ABNORMAL [None]
  - DIARRHOEA [None]
